FAERS Safety Report 11325550 (Version 1)
Quarter: 2015Q3

REPORT INFORMATION
  Report Type: Report from Study
  Country: US (occurrence: US)
  Receive Date: 20150731
  Receipt Date: 20150731
  Transmission Date: 20151125
  Serious: No
  Sender: FDA-Public Use
  Company Number: PHEH2015US007204

PATIENT
  Age: 25 Year
  Sex: Female

DRUGS (1)
  1. SANDOSTATIN LAR DEPOT [Suspect]
     Active Substance: OCTREOTIDE ACETATE
     Indication: ACROMEGALY
     Dosage: 40 MG, EVERY 4 WEEKS
     Route: 030

REACTIONS (3)
  - Drug ineffective [Unknown]
  - Drug dispensing error [Unknown]
  - Medication error [Unknown]

NARRATIVE: CASE EVENT DATE: 20150317
